FAERS Safety Report 4993214-3 (Version None)
Quarter: 2006Q1

REPORT INFORMATION
  Report Type: 
  Country: None (occurrence: None)
  Receive Date: 20060313
  Receipt Date: 20051129
  Transmission Date: 20060701
  Serious: No
  Sender: FDA-Public Use
  Company Number: 2005-BP-20260BP

PATIENT
  Age: 82 Year
  Sex: Female

DRUGS (8)
  1. SPIRIVA [Suspect]
     Indication: CHRONIC OBSTRUCTIVE PULMONARY DISEASE
     Dosage: 18 MCG (18 MCG,1 IN 1 D),IH
     Dates: start: 20040601, end: 20040701
  2. SPIRIVA [Suspect]
     Indication: EMPHYSEMA
     Dosage: 18 MCG (18 MCG,1 IN 1 D),IH
     Dates: start: 20040601, end: 20040701
  3. SPIRIVA [Suspect]
     Indication: CHRONIC OBSTRUCTIVE PULMONARY DISEASE
     Dosage: 18 MCG (18 MCG,1 IN 1 D),IH
     Dates: start: 20051116
  4. SPIRIVA [Suspect]
     Indication: EMPHYSEMA
     Dosage: 18 MCG (18 MCG,1 IN 1 D),IH
     Dates: start: 20051116
  5. SEREVENT [Suspect]
     Indication: CHRONIC OBSTRUCTIVE PULMONARY DISEASE
     Dosage: (BID)
     Dates: start: 20051116
  6. XOPENEX [Concomitant]
  7. SYNTHROID [Concomitant]
  8. ECOTRIN (ACETYLSALICYLIC ACID) [Concomitant]

REACTIONS (2)
  - HEART RATE INCREASED [None]
  - NERVOUSNESS [None]
